FAERS Safety Report 18408384 (Version 2)
Quarter: 2020Q4

REPORT INFORMATION
  Report Type: Report from Study
  Country: US (occurrence: US)
  Receive Date: 20201020
  Receipt Date: 20201228
  Transmission Date: 20210114
  Serious: Yes (Hospitalization, Other)
  Sender: FDA-Public Use
  Company Number: US-JAZZ-2020-US-013627

PATIENT
  Age: 35 Year
  Sex: Female

DRUGS (26)
  1. XYREM [Suspect]
     Active Substance: SODIUM OXYBATE
     Dosage: DOSE ADJUSTMENT
     Route: 048
     Dates: start: 200603, end: 201208
  2. VALIUM [Concomitant]
     Active Substance: DIAZEPAM
     Dosage: 5 MG
     Dates: end: 20181031
  3. QVAR [Concomitant]
     Active Substance: BECLOMETHASONE DIPROPIONATE
     Indication: PRODUCT USED FOR UNKNOWN INDICATION
     Dosage: 40 MCG
     Dates: start: 20161001
  4. XYREM [Suspect]
     Active Substance: SODIUM OXYBATE
     Indication: NARCOLEPSY
     Dosage: 2.25 GRAM, BID
     Route: 048
     Dates: start: 200602, end: 200603
  5. XYREM [Suspect]
     Active Substance: SODIUM OXYBATE
     Dosage: 5 GRAM, BID
     Route: 048
     Dates: start: 201208
  6. VALIUM [Concomitant]
     Active Substance: DIAZEPAM
     Dosage: 5 MG
     Dates: end: 20180531
  7. PROAIR HFA [Concomitant]
     Active Substance: ALBUTEROL SULFATE
     Indication: PRODUCT USED FOR UNKNOWN INDICATION
     Dosage: 50 MCG
     Dates: start: 20151125, end: 20151221
  8. HYDROXYCUT [Concomitant]
     Active Substance: DIETARY SUPPLEMENT
     Indication: PRODUCT USED FOR UNKNOWN INDICATION
     Dosage: UNK
     Dates: start: 20010101, end: 20150831
  9. VICODIN [Concomitant]
     Active Substance: ACETAMINOPHEN\HYDROCODONE BITARTRATE
     Indication: PRODUCT USED FOR UNKNOWN INDICATION
     Dosage: UNK
     Dates: start: 20010101, end: 20150831
  10. LEVORA [ETHINYLESTRADIOL;LEVONORGESTREL] [Concomitant]
     Indication: PRODUCT USED FOR UNKNOWN INDICATION
     Dosage: UNK
     Dates: start: 20010101, end: 20150831
  11. ARMODAFINIL. [Concomitant]
     Active Substance: ARMODAFINIL
     Indication: PRODUCT USED FOR UNKNOWN INDICATION
     Dosage: UNK
     Dates: start: 20180701
  12. CLONAZEPAM. [Concomitant]
     Active Substance: CLONAZEPAM
     Indication: PRODUCT USED FOR UNKNOWN INDICATION
     Dosage: UNK
     Dates: start: 20140523, end: 20140523
  13. ADVAIR HFA [Concomitant]
     Active Substance: FLUTICASONE PROPIONATE\SALMETEROL XINAFOATE
     Indication: PRODUCT USED FOR UNKNOWN INDICATION
     Dosage: UNK
     Dates: start: 20010101, end: 20150831
  14. MICROGESTIN FE [Concomitant]
     Active Substance: ETHINYL ESTRADIOL\FERROUS FUMARATE\NORETHINDRONE ACETATE
     Indication: PRODUCT USED FOR UNKNOWN INDICATION
     Dosage: UNK
     Dates: end: 20161231
  15. BUPROPION HCL [Concomitant]
     Active Substance: BUPROPION HYDROCHLORIDE
     Indication: PRODUCT USED FOR UNKNOWN INDICATION
     Dosage: UNK
     Dates: start: 20151125
  16. VIACTIV [CALCIUM] [Concomitant]
     Active Substance: CALCIUM
     Indication: PRODUCT USED FOR UNKNOWN INDICATION
     Dosage: UNK
     Dates: start: 20010101, end: 20150831
  17. SINGULAIR [Concomitant]
     Active Substance: MONTELUKAST SODIUM
     Indication: PRODUCT USED FOR UNKNOWN INDICATION
  18. VALIUM [Concomitant]
     Active Substance: DIAZEPAM
     Indication: PRODUCT USED FOR UNKNOWN INDICATION
     Dosage: 5 MG
     Dates: start: 20180701
  19. QVAR [Concomitant]
     Active Substance: BECLOMETHASONE DIPROPIONATE
     Dosage: 40 MCG
     Dates: end: 20160331
  20. MSM [METHYLSULFONYLMETHANE] [Concomitant]
     Indication: PRODUCT USED FOR UNKNOWN INDICATION
     Dosage: UNK
     Dates: start: 20010101, end: 20150831
  21. QVAR [Concomitant]
     Active Substance: BECLOMETHASONE DIPROPIONATE
     Dosage: 40 MCG
     Dates: start: 20151125, end: 20151221
  22. FLUTICASONE PROPIONATE. [Concomitant]
     Active Substance: FLUTICASONE PROPIONATE
     Dosage: 50 MCG
     Dates: end: 20160331
  23. PROVIGIL [Concomitant]
     Active Substance: MODAFINIL
     Indication: PRODUCT USED FOR UNKNOWN INDICATION
     Dosage: UNK
     Dates: start: 20010101, end: 20150831
  24. VALIUM [Concomitant]
     Active Substance: DIAZEPAM
     Dosage: 5 MG
     Dates: end: 20190731
  25. FLUTICASONE PROPIONATE. [Concomitant]
     Active Substance: FLUTICASONE PROPIONATE
     Indication: PRODUCT USED FOR UNKNOWN INDICATION
     Dosage: 50 MCG
     Dates: start: 20151125, end: 20151221
  26. PROAIR HFA [Concomitant]
     Active Substance: ALBUTEROL SULFATE
     Dosage: 50 MCG
     Dates: end: 20160331

REACTIONS (2)
  - Rib fracture [Unknown]
  - Road traffic accident [Unknown]

NARRATIVE: CASE EVENT DATE: 202008
